FAERS Safety Report 8557017-5 (Version None)
Quarter: 2012Q3

REPORT INFORMATION
  Report Type: 
  Country: None (occurrence: None)
  Receive Date: 20120801
  Receipt Date: 20120730
  Transmission Date: 20120928
  Serious: Yes (Other)
  Sender: FDA-Public Use
  Company Number: AR-ROCHE-1083969

PATIENT
  Sex: Female

DRUGS (1)
  1. LUCENTIS [Suspect]
     Indication: MACULOPATHY
     Dosage: 3 AMPOULES
     Route: 050
     Dates: start: 20100101

REACTIONS (2)
  - CONDITION AGGRAVATED [None]
  - MACULOPATHY [None]
